FAERS Safety Report 23880621 (Version 2)
Quarter: 2024Q2

REPORT INFORMATION
  Report Type: Spontaneous
  Country: CA (occurrence: None)
  Receive Date: 20240521
  Receipt Date: 20240522
  Transmission Date: 20240716
  Serious: Yes (Other)
  Sender: FDA-Public Use
  Company Number: 2024A116704

PATIENT
  Sex: Female

DRUGS (1)
  1. SYMBICORT [Suspect]
     Active Substance: BUDESONIDE\FORMOTEROL FUMARATE DIHYDRATE
     Indication: Emphysema
     Dosage: 200 UG,TWO TIMES A DAY
     Route: 055

REACTIONS (14)
  - Pulmonary fibrosis [Unknown]
  - Malaise [Unknown]
  - Cough [Unknown]
  - Pulmonary pain [Unknown]
  - Chest discomfort [Unknown]
  - Dyspnoea [Unknown]
  - Nervous system disorder [Unknown]
  - Diabetes mellitus [Unknown]
  - Lung disorder [Unknown]
  - Product use issue [Unknown]
  - Expired product administered [Unknown]
  - Intentional product use issue [Unknown]
  - Product dose omission issue [Unknown]
  - Drug ineffective [Unknown]

NARRATIVE: CASE EVENT DATE: 20240517
